FAERS Safety Report 19478590 (Version 1)
Quarter: 2021Q2

REPORT INFORMATION
  Report Type: Spontaneous
  Country: DE (occurrence: DE)
  Receive Date: 20210630
  Receipt Date: 20210630
  Transmission Date: 20210717
  Serious: Yes (Hospitalization)
  Sender: FDA-Public Use
  Company Number: DE-BAYER-2021-166677

PATIENT
  Age: 79 Year
  Sex: Male

DRUGS (3)
  1. VITAMIN B12 [Concomitant]
     Active Substance: CYANOCOBALAMIN
     Dosage: 200 ?G, OM
     Route: 048
  2. CIPROFLOXACIN. [Suspect]
     Active Substance: CIPROFLOXACIN
     Dosage: 500 MG, TABLETTEN
     Route: 048
  3. PANTOPRAZOL [PANTOPRAZOLE] [Concomitant]
     Active Substance: PANTOPRAZOLE
     Dosage: 20 MG, OM
     Route: 048

REACTIONS (4)
  - Taste disorder [Unknown]
  - Weight decreased [Unknown]
  - Urine odour abnormal [Unknown]
  - Renal impairment [Unknown]
